FAERS Safety Report 13184318 (Version 1)
Quarter: 2017Q1

REPORT INFORMATION
  Report Type: Spontaneous
  Country: US (occurrence: US)
  Receive Date: 20170202
  Receipt Date: 20170202
  Transmission Date: 20170428
  Serious: Yes (Life-Threatening, Hospitalization)
  Sender: FDA-Public Use
  Company Number: None

PATIENT
  Age: 51 Year
  Sex: Male
  Weight: 86.4 kg

DRUGS (1)
  1. CIPROFLOXACIN. [Suspect]
     Active Substance: CIPROFLOXACIN
     Indication: DEVICE RELATED INFECTION
     Route: 042
     Dates: start: 20161217, end: 20161218

REACTIONS (7)
  - Infusion related reaction [None]
  - Urticaria [None]
  - Back pain [None]
  - Dyspnoea [None]
  - Myalgia [None]
  - Paraesthesia oral [None]
  - Burning sensation [None]

NARRATIVE: CASE EVENT DATE: 20161218
